FAERS Safety Report 25403529 (Version 1)
Quarter: 2025Q2

REPORT INFORMATION
  Report Type: Report from Study
  Country: US (occurrence: US)
  Receive Date: 20250605
  Receipt Date: 20250605
  Transmission Date: 20250716
  Serious: Yes (Other)
  Sender: ALEXION PHARMACEUTICALS
  Company Number: US-AstraZeneca-CH-00884446A

PATIENT

DRUGS (1)
  1. DAPAGLIFLOZIN [Suspect]
     Active Substance: DAPAGLIFLOZIN
     Route: 065

REACTIONS (7)
  - Chronic kidney disease [Unknown]
  - Type 2 diabetes mellitus [Unknown]
  - Aortic arteriosclerosis [Unknown]
  - Open angle glaucoma [Unknown]
  - Dilated cardiomyopathy [Unknown]
  - Proteinuria [Unknown]
  - Type V hyperlipidaemia [Unknown]
